FAERS Safety Report 4542952-5 (Version None)
Quarter: 2004Q4

REPORT INFORMATION
  Report Type: 
  Country: None (occurrence: None)
  Receive Date: 20041229
  Receipt Date: 20041214
  Transmission Date: 20050328
  Serious: Yes (Hospitalization)
  Sender: FDA-Public Use
  Company Number: M04-341-084

PATIENT
  Age: 80 Year
  Sex: Female
  Weight: 54.2 kg

DRUGS (6)
  1. VELCADE [Suspect]
     Indication: MULTIPLE MYELOMA
     Dosage: SEE IMAGE
     Route: 040
     Dates: start: 20040323, end: 20040611
  2. VELCADE [Suspect]
     Indication: MULTIPLE MYELOMA
     Dosage: SEE IMAGE
     Route: 040
     Dates: start: 20040203
  3. VITAMIN E [Concomitant]
  4. VITAMIN C [Concomitant]
  5. MULTIVITAMINS, PLAIN [Concomitant]
  6. LOPERAMIDE HCL [Concomitant]

REACTIONS (10)
  - ANAEMIA [None]
  - BLOOD ALBUMIN DECREASED [None]
  - BLOOD CHLORIDE DECREASED [None]
  - FATIGUE [None]
  - GLOBULINS INCREASED [None]
  - HYPONATRAEMIA [None]
  - INAPPROPRIATE ANTIDIURETIC HORMONE SECRETION [None]
  - MONOCYTE PERCENTAGE INCREASED [None]
  - NAUSEA [None]
  - THROMBOCYTOPENIA [None]
